FAERS Safety Report 5264482-8 (Version None)
Quarter: 2007Q1

REPORT INFORMATION
  Report Type: 
  Country: None (occurrence: None)
  Receive Date: 20070302
  Receipt Date: 20070219
  Transmission Date: 20070707
  Serious: Yes (Death)
  Sender: FDA-Public Use
  Company Number: 2007307788

PATIENT
  Sex: Male

DRUGS (3)
  1. PSEUDOEPHEDRINE HCL [Suspect]
  2. TYLENOL SINUS (PARACETAMOL, PSEUDOEPHEDRINE HYDROCHLORIDE) [Concomitant]
  3. GUAIFENESIN [Concomitant]

REACTIONS (1)
  - ACCIDENT [None]
